FAERS Safety Report 7341864-1 (Version None)
Quarter: 2011Q1

REPORT INFORMATION
  Report Type: 
  Country: None (occurrence: None)
  Receive Date: 20110309
  Receipt Date: 20110307
  Transmission Date: 20110831
  Serious: Yes (Other)
  Sender: FDA-Public Use
  Company Number: GB-PFIZER INC-2011019292

PATIENT
  Age: 55 Year
  Sex: Male
  Weight: 100 kg

DRUGS (4)
  1. FLUCLOXACILLIN [Concomitant]
     Dosage: 1 DF, 4X/DAY
     Route: 048
     Dates: start: 20110122
  2. CHAMPIX [Suspect]
     Indication: SMOKING CESSATION THERAPY
     Dosage: 1 MG, 2X/DAY
     Route: 048
     Dates: start: 20100130, end: 20100326
  3. CLOBETASONE [Concomitant]
     Dosage: UNK
     Dates: start: 20110215
  4. BALNEUM [Concomitant]
     Dosage: UNK

REACTIONS (4)
  - CEREBRAL VENTRICLE DILATATION [None]
  - HEADACHE [None]
  - CEREBRAL ISCHAEMIA [None]
  - BENIGN INTRACRANIAL HYPERTENSION [None]
